FAERS Safety Report 8765947 (Version 1)
Quarter: 2012Q4

REPORT INFORMATION
  Report Type: 
  Country: CA (occurrence: CA)
  Receive Date: 20120904
  Receipt Date: 20120904
  Transmission Date: 20130627
  Serious: Yes (Other)
  Sender: FDA-Public Use
  Company Number: CA-JUTA-2012-15319

PATIENT
  Age: 57 Year
  Sex: Female

DRUGS (5)
  1. TACROLIMUS [Suspect]
     Indication: IMMUNOSUPPRESSION
     Dosage: 2 mg, daily
     Route: 065
  2. MYCOPHENOLATE MOFETIL [Suspect]
     Indication: IMMUNOSUPPRESSION
     Dosage: 250 mg, bid
     Route: 065
  3. PREDNISONE [Suspect]
     Indication: IMMUNOSUPPRESSION
     Dosage: 5 mg, daily
     Route: 065
  4. INFLIXIMAB [Suspect]
     Indication: INFLAMMATORY BOWEL DISEASE
     Dosage: 5 mg/kg
     Route: 042
  5. ADALIMUMAB [Suspect]
     Indication: INFLAMMATORY BOWEL DISEASE
     Dosage: 40 mg
     Route: 058

REACTIONS (1)
  - Colorectal adenocarcinoma [Unknown]
